FAERS Safety Report 5995562-7 (Version None)
Quarter: 2008Q4

REPORT INFORMATION
  Report Type: 
  Country: None (occurrence: None)
  Receive Date: 20081212
  Receipt Date: 20081001
  Transmission Date: 20090506
  Serious: No
  Sender: FDA-Public Use
  Company Number: US-ABBOTT-08P-163-0479241-00

PATIENT
  Sex: Male

DRUGS (10)
  1. HUMIRA [Suspect]
     Indication: ANKYLOSING SPONDYLITIS
     Route: 058
     Dates: start: 20080401
  2. HUMIRA [Suspect]
     Indication: CROHN'S DISEASE
     Dosage: ONCE WEEKLY, SYRINGE
     Route: 058
     Dates: start: 20050101, end: 20060101
  3. TOPIRAMATE [Concomitant]
     Indication: MIGRAINE
     Route: 048
  4. ESCITALOPRAM OXALATE [Concomitant]
     Indication: ANXIETY
     Route: 048
  5. ASACOL [Concomitant]
     Indication: CROHN'S DISEASE
  6. CALCIUM CARBONATE [Concomitant]
     Indication: DRUG USE FOR UNKNOWN INDICATION
  7. ERGOCALCIFEROL [Concomitant]
     Indication: DRUG USE FOR UNKNOWN INDICATION
  8. ESOMEPRAZOLE MAGNESIUM [Concomitant]
     Indication: DRUG USE FOR UNKNOWN INDICATION
  9. FAMOTIDINE [Concomitant]
     Indication: DRUG USE FOR UNKNOWN INDICATION
     Dosage: AT BEDTIME
  10. SUMATRIPTAN [Concomitant]
     Indication: MIGRAINE

REACTIONS (2)
  - BLOOD TESTOSTERONE DECREASED [None]
  - INJECTION SITE PAIN [None]
